FAERS Safety Report 4633788-5 (Version None)
Quarter: 2005Q2

REPORT INFORMATION
  Report Type: 
  Country: None (occurrence: None)
  Receive Date: 20050412
  Receipt Date: 20050412
  Transmission Date: 20051028
  Serious: Yes (Other)
  Sender: FDA-Public Use
  Company Number: None

PATIENT
  Age: 17 Year
  Sex: Female
  Weight: 79.3795 kg

DRUGS (1)
  1. TUBERSOL [Suspect]
     Dosage: 0.1 ML INTRDERMAL
     Route: 023

REACTIONS (5)
  - FEELING ABNORMAL [None]
  - FEELING HOT [None]
  - FLUSHING [None]
  - HEADACHE [None]
  - URTICARIA GENERALISED [None]
